FAERS Safety Report 19642100 (Version 4)
Quarter: 2022Q2

REPORT INFORMATION
  Report Type: Spontaneous
  Country: US (occurrence: US)
  Receive Date: 20210730
  Receipt Date: 20220601
  Transmission Date: 20220720
  Serious: Yes (Other)
  Sender: FDA-Public Use
  Company Number: US-PFIZER INC-202100910476

PATIENT
  Age: 11 Year
  Sex: Female
  Weight: 40.82 kg

DRUGS (2)
  1. GENOTROPIN [Suspect]
     Active Substance: SOMATROPIN
     Indication: Dwarfism
     Dosage: 2.4 MG, DAILY [TO ARMS AND THIGHS 6 DAYS A WEEK]
  2. GENOTROPIN [Suspect]
     Active Substance: SOMATROPIN
     Dosage: 2.6 MG (6 DAYS A WEEK)
     Dates: start: 20140515

REACTIONS (4)
  - Arthropathy [Recovered/Resolved with Sequelae]
  - Off label use [Unknown]
  - Device issue [Unknown]
  - Drug dose omission by device [Unknown]
